FAERS Safety Report 5342344-5 (Version None)
Quarter: 2007Q2

REPORT INFORMATION
  Report Type: 
  Country: None (occurrence: None)
  Receive Date: 20070601
  Receipt Date: 20070524
  Transmission Date: 20071010
  Serious: Yes (Other)
  Sender: FDA-Public Use
  Company Number: FR-ASTRAZENECA-2007CG00818

PATIENT
  Age: 94 Year
  Sex: Male

DRUGS (2)
  1. ATACAND [Suspect]
     Route: 048
     Dates: start: 20070101, end: 20070101
  2. LASIX [Concomitant]

REACTIONS (1)
  - VASCULITIS NECROTISING [None]
